FAERS Safety Report 15730553 (Version 1)
Quarter: 2018Q4

REPORT INFORMATION
  Report Type: Spontaneous
  Country: NO (occurrence: NO)
  Receive Date: 20181217
  Receipt Date: 20181217
  Transmission Date: 20190205
  Serious: Yes (Other)
  Sender: FDA-Public Use
  Company Number: NO-ANIPHARMA-2018-NO-000014

PATIENT
  Age: 76 Year
  Sex: Male

DRUGS (2)
  1. CIPROFLOXACIN (NON-SPECIFIC) [Suspect]
     Active Substance: CIPROFLOXACIN
     Indication: ARTHRITIS INFECTIVE
     Dosage: 750 MG TWICE DAILY
     Route: 048
  2. RIFAMPICIN [Concomitant]
     Active Substance: RIFAMPIN
     Dosage: 450 MG TWICE DAILY
     Route: 048

REACTIONS (1)
  - Aortic valve prolapse [Unknown]

NARRATIVE: CASE EVENT DATE: 201612
